FAERS Safety Report 4373391-8 (Version None)
Quarter: 2004Q2

REPORT INFORMATION
  Report Type: 
  Country: None (occurrence: None)
  Receive Date: 20040607
  Receipt Date: 20030523
  Transmission Date: 20050107
  Serious: Yes (Other)
  Sender: FDA-Public Use
  Company Number: 338677

PATIENT
  Age: 32 Year
  Sex: Female

DRUGS (1)
  1. ACCUTANE [Suspect]
     Dosage: 40 MG DAILY ORAL
     Route: 048
     Dates: start: 20020122, end: 20020219

REACTIONS (7)
  - AFFECTIVE DISORDER [None]
  - ARTHRALGIA [None]
  - DEPRESSED MOOD [None]
  - DEPRESSION [None]
  - HAEMATOCHEZIA [None]
  - PAIN [None]
  - PERSONALITY CHANGE [None]
